FAERS Safety Report 10871819 (Version 1)
Quarter: 2015Q1

REPORT INFORMATION
  Report Type: Spontaneous
  Country: US (occurrence: None)
  Receive Date: 20150223
  Receipt Date: 20150223
  Transmission Date: 20150721
  Serious: No
  Sender: FDA-Public Use
  Company Number: None

PATIENT
  Age: 28 Year
  Sex: Female
  Weight: 113.4 kg

DRUGS (3)
  1. LITHIUM [Concomitant]
     Active Substance: LITHIUM CARBONATE
  2. ZYRTEC [Concomitant]
     Active Substance: CETIRIZINE HYDROCHLORIDE
  3. LAMOTRIGINE 100MG ZYDUS PHARMACEUTICALS [Suspect]
     Active Substance: LAMOTRIGINE
     Dosage: 1
     Route: 048

REACTIONS (7)
  - Amnesia [None]
  - Confusional state [None]
  - Dizziness [None]
  - Headache [None]
  - Nausea [None]
  - Drug withdrawal syndrome [None]
  - Product substitution issue [None]

NARRATIVE: CASE EVENT DATE: 20150206
